FAERS Safety Report 11544176 (Version 1)
Quarter: 2015Q3

REPORT INFORMATION
  Report Type: Spontaneous
  Country: GB (occurrence: None)
  Receive Date: 20150922
  Receipt Date: 20150922
  Transmission Date: 20151125
  Serious: Yes (Death)
  Sender: FDA-Public Use
  Company Number: GB-ALSI-201500190

PATIENT
  Age: 13 Year
  Sex: Female
  Weight: 56 kg

DRUGS (4)
  1. METHOTREXATE [Suspect]
     Active Substance: METHOTREXATE
     Indication: ACUTE LYMPHOCYTIC LEUKAEMIA
     Route: 037
     Dates: start: 20080801, end: 20081209
  2. OXYGEN. [Concomitant]
     Active Substance: OXYGEN
  3. NITROUS OXIDE. [Suspect]
     Active Substance: NITROUS OXIDE
     Indication: GENERAL ANAESTHESIA
     Dosage: RESPIRATORY
     Route: 055
     Dates: start: 20080801, end: 200812
  4. PROPOFOL. [Concomitant]
     Active Substance: PROPOFOL

REACTIONS (8)
  - Drug interaction [None]
  - Leukoencephalopathy [None]
  - Dysarthria [None]
  - Affect lability [None]
  - Lethargy [None]
  - Coordination abnormal [None]
  - Neurological decompensation [None]
  - Eyelid ptosis [None]

NARRATIVE: CASE EVENT DATE: 20081215
